FAERS Safety Report 6121174-0 (Version None)
Quarter: 2009Q1

REPORT INFORMATION
  Report Type: 
  Country: None (occurrence: None)
  Receive Date: 20090312
  Receipt Date: 20090312
  Transmission Date: 20090719
  Serious: Yes (Other)
  Sender: FDA-Public Use
  Company Number: None

PATIENT
  Age: 33 Year
  Sex: Female
  Weight: 52.1637 kg

DRUGS (1)
  1. DEPO-PROVERA [Suspect]
     Indication: CONTRACEPTION
     Dosage: DEPROVERA 2 DOSES IM
     Route: 030
     Dates: start: 20080801, end: 20081101

REACTIONS (9)
  - BLINDNESS TRANSIENT [None]
  - BREAST PAIN [None]
  - BREAST SWELLING [None]
  - FATIGUE [None]
  - HYPOAESTHESIA [None]
  - MOOD SWINGS [None]
  - MUSCLE SPASMS [None]
  - SUICIDAL IDEATION [None]
  - VISION BLURRED [None]
